FAERS Safety Report 5045246-7 (Version None)
Quarter: 2006Q2

REPORT INFORMATION
  Report Type: 
  Country: None (occurrence: None)
  Receive Date: 20060601
  Receipt Date: 20060412
  Transmission Date: 20061013
  Serious: No
  Sender: FDA-Public Use
  Company Number: 2006-BP-03573BP

PATIENT
  Age: 73 Year
  Sex: Male

DRUGS (9)
  1. SPIRIVA [Suspect]
     Indication: CHRONIC OBSTRUCTIVE PULMONARY DISEASE
     Dosage: 18 MCG (18 MCG, 1 IN 1 D), IH
     Route: 055
     Dates: start: 20060101
  2. TOPROL-XL [Concomitant]
  3. ZETIA [Concomitant]
  4. UROXATRAL [Concomitant]
  5. FLONASE [Concomitant]
  6. ALBUTEROL [Concomitant]
  7. LUPRON [Concomitant]
  8. CASODEX [Concomitant]
  9. GLUCOSAMINE (GLUCOSAMINE) [Concomitant]

REACTIONS (1)
  - DRUG INEFFECTIVE [None]
